FAERS Safety Report 8074012-3 (Version None)
Quarter: 2012Q1

REPORT INFORMATION
  Report Type: 
  Country: None (occurrence: None)
  Receive Date: 20120119
  Receipt Date: 20120109
  Transmission Date: 20120608
  Serious: Yes (Other)
  Sender: FDA-Public Use
  Company Number: 1000027141

PATIENT
  Age: 26 Year
  Sex: Female

DRUGS (2)
  1. ESCITALOPRAM OXALATE [Suspect]
     Dosage: ORAL
     Route: 048
  2. CONTRACEPTIVES (CONTRACEPTIVES) [Concomitant]

REACTIONS (4)
  - PERIPHERAL COLDNESS [None]
  - PRURITUS [None]
  - SKIN BURNING SENSATION [None]
  - NERVOUSNESS [None]
